FAERS Safety Report 20202959 (Version 10)
Quarter: 2022Q2

REPORT INFORMATION
  Report Type: Spontaneous
  Country: CA (occurrence: CA)
  Receive Date: 20211218
  Receipt Date: 20220421
  Transmission Date: 20220721
  Serious: Yes (Other)
  Sender: FDA-Public Use
  Company Number: CA-CELLTRION INC.-2021CA009356

PATIENT

DRUGS (10)
  1. INFLECTRA [Suspect]
     Active Substance: INFLIXIMAB-DYYB
     Indication: Crohn^s disease
     Dosage: 400 MG EVERY 8 WEEKS
     Route: 042
     Dates: start: 20170524, end: 20191227
  2. INFLECTRA [Suspect]
     Active Substance: INFLIXIMAB-DYYB
     Dosage: 400 MG EVERY 8 WEEKS
     Route: 042
     Dates: start: 20170524, end: 20191030
  3. INFLECTRA [Suspect]
     Active Substance: INFLIXIMAB-DYYB
     Dosage: 400 MG EVERY 8 WEEKS
     Route: 042
     Dates: start: 20191030
  4. INFLECTRA [Suspect]
     Active Substance: INFLIXIMAB-DYYB
     Dosage: 5 MG/KG (510MG), REINDUCTION AT WEEK 0, 2 AND 6, THEN EVERY 8 WEEKS
     Route: 042
     Dates: start: 20220110, end: 20220328
  5. INFLECTRA [Suspect]
     Active Substance: INFLIXIMAB-DYYB
     Dosage: 5 MG/KGREINDUCTION AT WEEK 0, 2 AND 6, THEN EVERY 8 WEEKS
     Route: 042
     Dates: start: 20220110, end: 20220328
  6. INFLECTRA [Suspect]
     Active Substance: INFLIXIMAB-DYYB
     Dosage: 5 MG/KG  0, 2 AND 6, THEN EVERY 8 WEEKS
     Route: 042
     Dates: start: 20220124
  7. INFLECTRA [Suspect]
     Active Substance: INFLIXIMAB-DYYB
     Dosage: 5 MG/KG  0, 2 AND 6, THEN EVERY 8 WEEKS
     Route: 042
     Dates: start: 20220328, end: 20220328
  8. BENADRYL [Concomitant]
     Active Substance: DIPHENHYDRAMINE HYDROCHLORIDE
     Indication: Premedication
     Dosage: 50 MG
     Route: 048
  9. HYDROCORTISONE [Concomitant]
     Active Substance: HYDROCORTISONE
     Indication: Premedication
     Dosage: 100 MG
     Route: 042
  10. TYLENOL [Concomitant]
     Active Substance: ACETAMINOPHEN
     Indication: Premedication
     Dosage: 1000 MG
     Route: 048

REACTIONS (24)
  - Joint injury [Unknown]
  - Face oedema [Recovered/Resolved]
  - Throat tightness [Recovered/Resolved]
  - Dyspnoea [Recovered/Resolved]
  - Anaphylactic shock [Recovered/Resolved]
  - Condition aggravated [Unknown]
  - Weight increased [Unknown]
  - Anal fissure [Unknown]
  - Arthralgia [Unknown]
  - Erythema [Recovered/Resolved]
  - Hypertension [Unknown]
  - Pharyngeal paraesthesia [Recovered/Resolved]
  - Oxygen saturation decreased [Recovered/Resolved]
  - Body temperature increased [Unknown]
  - Injection site erythema [Unknown]
  - Refusal of treatment by patient [Unknown]
  - Erythema [Recovered/Resolved]
  - Oedema [Recovered/Resolved]
  - Throat irritation [Recovered/Resolved]
  - Dyspnoea [Recovered/Resolved]
  - Tachycardia [Recovered/Resolved]
  - Blood pressure increased [Recovered/Resolved]
  - Off label use [Unknown]
  - Intentional product use issue [Unknown]

NARRATIVE: CASE EVENT DATE: 20211202
